FAERS Safety Report 9905707 (Version 1)
Quarter: 2014Q1

REPORT INFORMATION
  Report Type: Spontaneous
  Country: GB (occurrence: GB)
  Receive Date: 20140218
  Receipt Date: 20140218
  Transmission Date: 20141002
  Serious: Yes (Other)
  Sender: FDA-Public Use
  Company Number: GB-ACTAVIS-2014-02399

PATIENT
  Sex: Male

DRUGS (6)
  1. IRINOTECAN (UNKNOWN) [Suspect]
     Indication: COLORECTAL CANCER METASTATIC
     Dosage: UNK, CYCLICAL
     Route: 042
  2. IRINOTECAN (UNKNOWN) [Suspect]
     Dosage: UNK, CYCLICAL
     Route: 042
  3. CALCIUM FOLINATE (UNKNOWN) [Suspect]
     Indication: COLORECTAL CANCER METASTATIC
     Dosage: UNK, CYCLICAL
     Route: 042
  4. CALCIUM FOLINATE (UNKNOWN) [Suspect]
     Dosage: UNK, CYCLICAL
     Route: 042
  5. FLUOROURACIL (UNKNOWN) [Suspect]
     Indication: COLORECTAL CANCER METASTATIC
     Dosage: UNK, CYCLICAL
     Route: 042
  6. FLUOROURACIL (UNKNOWN) [Suspect]
     Dosage: UNK, CYCLICAL
     Route: 042

REACTIONS (2)
  - Pulmonary embolism [Not Recovered/Not Resolved]
  - Cardiac disorder [Not Recovered/Not Resolved]
